FAERS Safety Report 16357587 (Version 1)
Quarter: 2019Q2

REPORT INFORMATION
  Report Type: Spontaneous
  Country: US (occurrence: US)
  Receive Date: 20190418
  Receipt Date: 20190418
  Transmission Date: 20190711
  Serious: Yes (Disabling)
  Sender: FDA-Public Use
  Company Number: None

PATIENT
  Age: 52 Year
  Sex: Female
  Weight: 47.63 kg

DRUGS (2)
  1. ATIVAN [Concomitant]
     Active Substance: LORAZEPAM
  2. BOTOX [Suspect]
     Active Substance: ONABOTULINUMTOXINA
     Indication: INJECTION
     Dates: start: 20190226

REACTIONS (9)
  - Joint stiffness [None]
  - Joint noise [None]
  - Tremor [None]
  - Facial paralysis [None]
  - Neck pain [None]
  - Confusional state [None]
  - Insomnia [None]
  - Back pain [None]
  - Memory impairment [None]

NARRATIVE: CASE EVENT DATE: 20190226
